FAERS Safety Report 12633676 (Version 7)
Quarter: 2019Q2

REPORT INFORMATION
  Report Type: Report from Study
  Country: DE (occurrence: DE)
  Receive Date: 20160808
  Receipt Date: 20190522
  Transmission Date: 20190711
  Serious: Yes (Other)
  Sender: FDA-Public Use
  Company Number: PHHY2016DE108095

PATIENT
  Sex: Female

DRUGS (3)
  1. URIVESC [Concomitant]
     Active Substance: TROSPIUM CHLORIDE
     Indication: MICTURITION DISORDER
     Dosage: 60 MG, UNK
     Route: 065
     Dates: start: 20180703
  2. GILENYA [Suspect]
     Active Substance: FINGOLIMOD HYDROCHLORIDE
     Indication: MULTIPLE SCLEROSIS
     Dosage: 0.5 MG, QD
     Route: 048
     Dates: start: 20160322
  3. VITAMIN D [Concomitant]
     Active Substance: VITAMIN D NOS
     Indication: VITAMIN SUPPLEMENTATION
     Dosage: 1000 IU, UNK
     Route: 065

REACTIONS (3)
  - Hypertension [Not Recovered/Not Resolved]
  - Blood pressure increased [Unknown]
  - Hypertensive crisis [Recovered/Resolved]

NARRATIVE: CASE EVENT DATE: 20160802
